FAERS Safety Report 9483819 (Version 2)
Quarter: 2013Q3

REPORT INFORMATION
  Report Type: Spontaneous
  Country: CA (occurrence: CA)
  Receive Date: 20130828
  Receipt Date: 20130828
  Transmission Date: 20140515
  Serious: Yes (Hospitalization)
  Sender: FDA-Public Use
  Company Number: CA-AMGEN-KDL334693

PATIENT
  Age: 70 Year
  Sex: Female
  Weight: 40.9 kg

DRUGS (2)
  1. ENBREL [Suspect]
     Indication: RHEUMATOID ARTHRITIS
     Dosage: UNK UNK, QWK
     Route: 065
     Dates: start: 20080715
  2. WARFARIN SODIUM [Concomitant]
     Dosage: UNK UNK, QD

REACTIONS (7)
  - Clostridium difficile infection [Recovering/Resolving]
  - Memory impairment [Unknown]
  - International normalised ratio increased [Unknown]
  - Pyrexia [Not Recovered/Not Resolved]
  - Herpes zoster [Unknown]
  - Pain [Unknown]
  - Pruritus [Unknown]
